FAERS Safety Report 5654717-1 (Version None)
Quarter: 2008Q1

REPORT INFORMATION
  Report Type: 
  Country: None (occurrence: None)
  Receive Date: 20080307
  Receipt Date: 20080227
  Transmission Date: 20080703
  Serious: Yes (Life-Threatening, Other)
  Sender: FDA-Public Use
  Company Number: GB-JNJFOC-20080207091

PATIENT
  Age: 65 Year
  Sex: Female
  Weight: 53 kg

DRUGS (14)
  1. REMICADE [Suspect]
     Route: 042
  2. REMICADE [Suspect]
     Indication: DRUG USE FOR UNKNOWN INDICATION
     Route: 042
  3. HUMIRA [Suspect]
     Indication: RHEUMATOID ARTHRITIS
     Dosage: EVERY 2 1/2 WEEKS
     Route: 058
  4. CELECOXIB [Concomitant]
  5. ETIDRONATE DISODIUM [Concomitant]
  6. FERROUS SULFATE TAB [Concomitant]
  7. FOLIC ACID [Concomitant]
  8. HYDROXYCHLOROQUINE SULFATE [Concomitant]
  9. LANSOPRAZOLE [Concomitant]
  10. METHOTREXATE [Concomitant]
  11. PREDNISOLONE [Concomitant]
  12. RABEPRAZOLE SODIUM [Concomitant]
  13. RISEDRONATE SODIUM [Concomitant]
  14. LEKOVIT CA [Concomitant]
     Dosage: 2 DF

REACTIONS (1)
  - TUBERCULOSIS [None]
